FAERS Safety Report 15705687 (Version 1)
Quarter: 2018Q4

REPORT INFORMATION
  Report Type: Spontaneous
  Country: ES (occurrence: ES)
  Receive Date: 20181210
  Receipt Date: 20181210
  Transmission Date: 20190205
  Serious: Yes (Hospitalization)
  Sender: FDA-Public Use
  Company Number: ES-FERA PHARMACEUTICALS, LLC-2018PRG00282

PATIENT
  Age: 62 Year
  Sex: Female

DRUGS (4)
  1. DARBEPOETIN [Concomitant]
     Active Substance: DARBEPOETIN ALFA
     Dosage: 150 MG, 1X/MONTH
     Route: 065
  2. SIMVASTATIN. [Concomitant]
     Active Substance: SIMVASTATIN
     Dosage: 20 MG, 1X/DAY
     Route: 065
  3. LENALIDOMIDE [Suspect]
     Active Substance: LENALIDOMIDE
     Indication: PLASMA CELL MYELOMA
     Dosage: 25 MG, 1X/DAY
     Route: 065
  4. DEXAMETHASONE. [Suspect]
     Active Substance: DEXAMETHASONE
     Indication: PLASMA CELL MYELOMA
     Dosage: 40 MG, 1X/WEEK
     Route: 065

REACTIONS (2)
  - Cerebral infarction [Recovering/Resolving]
  - Potentiating drug interaction [Recovered/Resolved]
